FAERS Safety Report 17055903 (Version 3)
Quarter: 2020Q1

REPORT INFORMATION
  Report Type: Report from Study
  Country: None (occurrence: GR)
  Receive Date: 20191120
  Receipt Date: 20200122
  Transmission Date: 20200409
  Serious: Yes (Hospitalization, Other)
  Sender: FDA-Public Use
  Company Number: GR-ABBVIE-19K-066-3002347-00

PATIENT
  Age: 61 Year
  Sex: Male
  Weight: 90 kg

DRUGS (10)
  1. MADOPAR [Concomitant]
     Active Substance: BENSERAZIDE HYDROCHLORIDE\LEVODOPA
     Indication: PARKINSON^S DISEASE
     Dosage: ONCE DAILY AT 11:30PM
     Route: 048
  2. NEXIUM [Concomitant]
     Active Substance: ESOMEPRAZOLE MAGNESIUM
     Indication: PRODUCT USED FOR UNKNOWN INDICATION
     Route: 048
  3. CLONOTRIL [Concomitant]
     Active Substance: CLONAZEPAM
     Indication: PRODUCT USED FOR UNKNOWN INDICATION
     Route: 048
     Dates: start: 20190412, end: 2019
  4. CLONOTRIL [Concomitant]
     Active Substance: CLONAZEPAM
     Dates: start: 20190412
  5. DUODOPA [Suspect]
     Active Substance: CARBIDOPA\LEVODOPA
     Dosage: CONTINUOUS RATE: 5ML; EXTRA DOSE: 2.5ML (24H USE OF THE PUMP)
     Route: 050
     Dates: start: 20191113
  6. LOGIMAX [Concomitant]
     Active Substance: FELODIPINE\METOPROLOL SUCCINATE
     Indication: HYPERTENSION
     Dosage: (5+47.5)MG
     Route: 048
  7. BEROVENT [Concomitant]
     Active Substance: ALBUTEROL SULFATE\IPRATROPIUM BROMIDE
     Indication: PRODUCT USED FOR UNKNOWN INDICATION
     Dosage: 0,020+1,120 MG
     Route: 055
  8. FILICINE [Concomitant]
     Indication: PRODUCT USED FOR UNKNOWN INDICATION
     Route: 048
  9. DUODOPA [Suspect]
     Active Substance: CARBIDOPA\LEVODOPA
     Indication: PARKINSON^S DISEASE
     Dosage: CONTINUOUS RATE: 5.2ML; EXTRA DOSE: 2.5ML (24H USE OF THE PUMP)
     Route: 050
     Dates: start: 20181214, end: 20191113
  10. COSYREL [Concomitant]
     Active Substance: BISOPROLOL FUMARATE\PERINDOPRIL ARGININE
     Indication: CARDIAC DISORDER
     Dosage: (10+5)MG
     Route: 048

REACTIONS (8)
  - Peripheral sensory neuropathy [Unknown]
  - Pneumothorax [Unknown]
  - Peripheral motor neuropathy [Unknown]
  - Urinary tract infection pseudomonal [Recovered/Resolved]
  - Atelectasis [Unknown]
  - Gait inability [Recovering/Resolving]
  - Hyperkinesia [Not Recovered/Not Resolved]
  - Pleural effusion [Unknown]

NARRATIVE: CASE EVENT DATE: 201909
